FAERS Safety Report 25075592 (Version 2)
Quarter: 2025Q1

REPORT INFORMATION
  Report Type: Report from Study
  Country: US (occurrence: US)
  Receive Date: 20250313
  Receipt Date: 20250318
  Transmission Date: 20250409
  Serious: Yes (Death)
  Sender: NOVARTIS
  Company Number: US-002147023-NVSC2024US207460

PATIENT
  Age: 79 Year
  Sex: Female

DRUGS (1)
  1. KISQALI [Suspect]
     Active Substance: RIBOCICLIB
     Indication: Breast cancer metastatic
     Dosage: 600 MG, QD
     Route: 048
     Dates: start: 20241014

REACTIONS (13)
  - Death [Fatal]
  - Chromaturia [Unknown]
  - Yellow skin [Unknown]
  - Stomatitis [Unknown]
  - Diarrhoea [Unknown]
  - Vomiting [Unknown]
  - Fatigue [Unknown]
  - Hypophagia [Unknown]
  - Body temperature increased [Unknown]
  - Fluid intake reduced [Unknown]
  - Sensory processing disorder [Unknown]
  - Mastication disorder [Unknown]
  - Ocular icterus [Unknown]

NARRATIVE: CASE EVENT DATE: 20241105
